FAERS Safety Report 17598612 (Version 2)
Quarter: 2020Q2

REPORT INFORMATION
  Report Type: Spontaneous
  Country: AU (occurrence: AU)
  Receive Date: 20200330
  Receipt Date: 20200408
  Transmission Date: 20200713
  Serious: Yes (Other)
  Sender: FDA-Public Use
  Company Number: AU-ABBVIE-20K-008-3337746-00

PATIENT

DRUGS (2)
  1. SEVOFRANE [Suspect]
     Active Substance: SEVOFLURANE
     Route: 045
  2. SEVOFRANE [Suspect]
     Active Substance: SEVOFLURANE
     Indication: PRODUCT USED FOR UNKNOWN INDICATION
     Route: 045

REACTIONS (3)
  - Device issue [Unknown]
  - Device placement issue [Unknown]
  - Premature recovery from anaesthesia [Unknown]
